FAERS Safety Report 16579104 (Version 2)
Quarter: 2021Q2

REPORT INFORMATION
  Report Type: Report from Study
  Country: US (occurrence: US)
  Receive Date: 20190716
  Receipt Date: 20210428
  Transmission Date: 20210716
  Serious: Yes (Other)
  Sender: FDA-Public Use
  Company Number: US-CURIUM-200300138

PATIENT
  Age: 45 Year
  Sex: Female

DRUGS (2)
  1. SODIUM IODIDE I 131 [Suspect]
     Active Substance: SODIUM IODIDE I-131
     Dosage: 5550 MBQ
     Route: 065
     Dates: start: 200002, end: 200002
  2. SODIUM IODIDE I 131 [Suspect]
     Active Substance: SODIUM IODIDE I-131
     Dosage: 3996 MBQ
     Route: 065
     Dates: start: 199901, end: 199901

REACTIONS (2)
  - Lacrimation increased [Unknown]
  - Dacryostenosis acquired [Unknown]

NARRATIVE: CASE EVENT DATE: 2000
